FAERS Safety Report 11075232 (Version 1)
Quarter: 2015Q2

REPORT INFORMATION
  Report Type: Spontaneous
  Country: FR (occurrence: FR)
  Receive Date: 20150429
  Receipt Date: 20150429
  Transmission Date: 20150821
  Serious: Yes (Hospitalization)
  Sender: FDA-Public Use
  Company Number: FR-PFIZER INC-2015143477

PATIENT
  Age: 13 Year
  Sex: Male
  Weight: 75 kg

DRUGS (1)
  1. XANAX [Suspect]
     Active Substance: ALPRAZOLAM
     Indication: RELAXATION THERAPY
     Dosage: UNK, SINGLE
     Route: 048
     Dates: start: 20150319, end: 20150319

REACTIONS (2)
  - Balance disorder [Recovered/Resolved]
  - Somnolence [Recovered/Resolved]

NARRATIVE: CASE EVENT DATE: 20150319
